FAERS Safety Report 9215054 (Version 1)
Quarter: 2013Q2

REPORT INFORMATION
  Report Type: Spontaneous
  Country: US (occurrence: US)
  Receive Date: 20130405
  Receipt Date: 20130405
  Transmission Date: 20140414
  Serious: Yes (Hospitalization)
  Sender: FDA-Public Use
  Company Number: US-BAYER-2013-041347

PATIENT
  Age: 22 Year
  Sex: Female

DRUGS (3)
  1. YAZ [Suspect]
  2. GIANVI [Suspect]
  3. BACTRIM [Concomitant]
     Indication: URINARY TRACT INFECTION
     Dosage: UNK
     Dates: start: 20110320

REACTIONS (1)
  - Pulmonary embolism [None]
